FAERS Safety Report 9400056 (Version 1)
Quarter: 2013Q3

REPORT INFORMATION
  Report Type: Report from Study
  Country: DE (occurrence: DE)
  Receive Date: 20130715
  Receipt Date: 20130715
  Transmission Date: 20140515
  Serious: Yes (Hospitalization, Other)
  Sender: FDA-Public Use
  Company Number: DE-ASTELLAS-2013US007287

PATIENT
  Age: 70 Year
  Sex: Female

DRUGS (5)
  1. ERLOTINIB TABLET [Suspect]
     Indication: PANCREATIC CARCINOMA
     Dosage: 100 MG, UID/QD
     Route: 048
     Dates: start: 20130507, end: 20130524
  2. PANZYTRAT                          /00014701/ [Concomitant]
     Indication: PRODUCT USED FOR UNKNOWN INDICATION
     Dosage: 25000 IU, TID
     Route: 065
     Dates: start: 201111
  3. PANTOZAL [Concomitant]
     Indication: PRODUCT USED FOR UNKNOWN INDICATION
     Dosage: 40 MG, UID/QD
     Route: 065
     Dates: start: 201111
  4. GEMCITABINE /01215702/ [Suspect]
     Indication: PRODUCT USED FOR UNKNOWN INDICATION
     Dosage: 1700 MG, WEEKLY
     Route: 042
     Dates: start: 20130507
  5. METAMIZOL /06276702/ [Suspect]
     Indication: PRODUCT USED FOR UNKNOWN INDICATION
     Dosage: 500 MG, UNKNOWN/D
     Route: 048
     Dates: start: 201306

REACTIONS (4)
  - Jaundice extrahepatic obstructive [Unknown]
  - Pain [Recovering/Resolving]
  - General physical health deterioration [Recovering/Resolving]
  - Malignant neoplasm progression [Unknown]
